FAERS Safety Report 11696258 (Version 1)
Quarter: 2015Q4

REPORT INFORMATION
  Report Type: Spontaneous
  Country: US (occurrence: US)
  Receive Date: 20151104
  Receipt Date: 20151104
  Transmission Date: 20160304
  Serious: Yes (Other)
  Sender: FDA-Public Use
  Company Number: US-PFIZER INC-2015358452

PATIENT
  Age: 88 Year
  Sex: Female
  Weight: 92 kg

DRUGS (1)
  1. IBRANCE [Suspect]
     Active Substance: PALBOCICLIB
     Indication: BREAST CANCER
     Dosage: 75 MG, CYCLIC (DAY 1-14 Q 21 DAYS)
     Route: 048
     Dates: start: 20150520

REACTIONS (4)
  - Arthritis [Unknown]
  - Haematoma [Unknown]
  - Red blood cell count decreased [Unknown]
  - White blood cell count decreased [Unknown]
